FAERS Safety Report 18318007 (Version 4)
Quarter: 2022Q2

REPORT INFORMATION
  Report Type: Spontaneous
  Country: US (occurrence: US)
  Receive Date: 20200928
  Receipt Date: 20220413
  Transmission Date: 20220720
  Serious: No
  Sender: FDA-Public Use
  Company Number: US-PFIZER INC-2019249329

PATIENT
  Age: 63 Year
  Sex: Female
  Weight: 55 kg

DRUGS (4)
  1. LYRICA [Suspect]
     Active Substance: PREGABALIN
     Indication: Neuropathy peripheral
     Dosage: 75 MG, TWICE A DAY
  2. LYRICA [Suspect]
     Active Substance: PREGABALIN
     Indication: Back pain
  3. PREVALITE [Concomitant]
     Active Substance: CHOLESTYRAMINE
     Indication: Diarrhoea
     Dosage: 4 GRAM OF ANHYDROUS CHOLESTYRAMINE RESIN USP IN 5.5 GRAMS OF POWDER
  4. MORPHINE [Concomitant]
     Active Substance: MORPHINE
     Dosage: UNK

REACTIONS (3)
  - Therapeutic product effect incomplete [Unknown]
  - Asthenia [Unknown]
  - Malaise [Unknown]
